FAERS Safety Report 18493908 (Version 1)
Quarter: 2020Q4

REPORT INFORMATION
  Report Type: Spontaneous
  Country: US (occurrence: US)
  Receive Date: 20201112
  Receipt Date: 20201112
  Transmission Date: 20210114
  Serious: Yes (Other)
  Sender: FDA-Public Use
  Company Number: US-CIPLA LTD.-2020US06039

PATIENT

DRUGS (2)
  1. GABAPENTIN. [Suspect]
     Active Substance: GABAPENTIN
     Indication: ARTHRALGIA
     Dosage: 200 MILLIGRAM, UNK
     Route: 048
     Dates: start: 2020, end: 202008
  2. GABAPENTIN. [Suspect]
     Active Substance: GABAPENTIN
     Indication: SPINAL STENOSIS
     Dosage: 100 MILLIGRAM, UNK
     Route: 048
     Dates: start: 2020, end: 2020

REACTIONS (12)
  - Diplopia [Not Recovered/Not Resolved]
  - Feeling drunk [Not Recovered/Not Resolved]
  - Vertigo [Not Recovered/Not Resolved]
  - Product use in unapproved indication [Unknown]
  - Eye movement disorder [Not Recovered/Not Resolved]
  - Dizziness [Not Recovered/Not Resolved]
  - Gait inability [Not Recovered/Not Resolved]
  - Speech disorder [Not Recovered/Not Resolved]
  - Off label use [Unknown]
  - Dyskinesia [Not Recovered/Not Resolved]
  - Coordination abnormal [Not Recovered/Not Resolved]
  - Helplessness [Not Recovered/Not Resolved]

NARRATIVE: CASE EVENT DATE: 2020
